FAERS Safety Report 5531379-5 (Version None)
Quarter: 2007Q4

REPORT INFORMATION
  Report Type: 
  Country: None (occurrence: None)
  Receive Date: 20071128
  Receipt Date: 20071114
  Transmission Date: 20080405
  Serious: Yes (Other)
  Sender: FDA-Public Use
  Company Number: GXKR2007IN09821

PATIENT
  Age: 34 Year
  Sex: Female
  Weight: 65 kg

DRUGS (3)
  1. AMOXICILLIN, CLAVULVANIC ACID, LACTOBACILLUS ACID, LACTOBACILLUS SPORO [Suspect]
     Indication: LOWER RESPIRATORY TRACT INFECTION
     Dosage: 5 ML, BID, ORAL
     Route: 048
  2. ACETAMINOPHEN [Concomitant]
  3. METHIONINE CAP [Interacting]

REACTIONS (5)
  - ABDOMINAL DISCOMFORT [None]
  - HAEMATEMESIS [None]
  - INSOMNIA [None]
  - IRRITABILITY [None]
  - NAUSEA [None]
